FAERS Safety Report 9452859 (Version 1)
Quarter: 2013Q3

REPORT INFORMATION
  Report Type: Spontaneous
  Country: US (occurrence: US)
  Receive Date: 20130812
  Receipt Date: 20130812
  Transmission Date: 20140515
  Serious: Yes (Disabling, Other)
  Sender: FDA-Public Use
  Company Number: US-BAYER-2013-095081

PATIENT
  Sex: Female

DRUGS (2)
  1. AVELOX I.V. [Suspect]
     Indication: PNEUMONIA
     Dosage: UNK
     Dates: start: 201212
  2. AVELOX [Suspect]
     Indication: PNEUMONIA
     Dosage: 4 OR 5 DAYS
     Dates: start: 201212

REACTIONS (12)
  - Blood pressure increased [None]
  - Visual impairment [None]
  - Eye disorder [None]
  - Visual impairment [None]
  - Dry eye [None]
  - Excessive eye blinking [None]
  - Pain in extremity [None]
  - Asthenia [None]
  - Walking aid user [None]
  - Gait disturbance [None]
  - Dizziness [None]
  - Upper-airway cough syndrome [None]
